FAERS Safety Report 25277209 (Version 2)
Quarter: 2025Q3

REPORT INFORMATION
  Report Type: Report from Study
  Country: IN (occurrence: IN)
  Receive Date: 20250507
  Receipt Date: 20250704
  Transmission Date: 20251021
  Serious: Yes (Death, Hospitalization, Other)
  Sender: CIPLA
  Company Number: IN-CIPLA (EU) LIMITED-2025IN05128

PATIENT

DRUGS (34)
  1. ACYCLOVIR [Suspect]
     Active Substance: ACYCLOVIR
     Indication: Prophylaxis
     Dosage: 100 MILLIGRAM, TID (1/4 TAB FOR THREE TIMES A DAY) (22.5 (10 MG/KG/DOSE) DOSE TABLET)
     Route: 048
     Dates: start: 20250116, end: 20250308
  2. ACYCLOVIR [Suspect]
     Active Substance: ACYCLOVIR
     Indication: Varicella
  3. ALLOPURINOL [Concomitant]
     Active Substance: ALLOPURINOL
     Indication: Product used for unknown indication
     Route: 065
     Dates: start: 20241205, end: 20250308
  4. PREDNISOLONE [Concomitant]
     Active Substance: PREDNISOLONE
     Indication: Product used for unknown indication
     Route: 065
     Dates: start: 20241211, end: 20250308
  5. LANZOL [Concomitant]
     Indication: Product used for unknown indication
     Route: 065
     Dates: start: 20241211, end: 20250308
  6. CEFLEN [CEFALOTIN SODIUM] [Concomitant]
     Indication: Product used for unknown indication
     Route: 065
     Dates: start: 20241227, end: 20241229
  7. AMIKACIN [Concomitant]
     Active Substance: AMIKACIN
     Indication: Product used for unknown indication
     Route: 065
     Dates: start: 20241227, end: 20241229
  8. ACETAMINOPHEN [Concomitant]
     Active Substance: ACETAMINOPHEN
     Indication: Product used for unknown indication
     Route: 065
  9. SEPTRAN [AMMONIUM CHLORIDE;GUAIFENESIN;SULFAMETHOXAZOLE;TRIMETHOPRIM] [Concomitant]
     Indication: Product used for unknown indication
     Route: 065
     Dates: start: 20241228, end: 20250302
  10. MERCAPTOPURINE [Concomitant]
     Active Substance: MERCAPTOPURINE
     Indication: Product used for unknown indication
     Route: 065
     Dates: start: 20250118, end: 20250118
  11. MERCAPTOPURINE [Concomitant]
     Active Substance: MERCAPTOPURINE
     Route: 065
     Dates: start: 20250119, end: 20250119
  12. MERCAPTOPURINE [Concomitant]
     Active Substance: MERCAPTOPURINE
     Route: 065
     Dates: start: 20250120, end: 20250120
  13. MERCAPTOPURINE [Concomitant]
     Active Substance: MERCAPTOPURINE
     Route: 065
  14. MERCAPTOPURINE [Concomitant]
     Active Substance: MERCAPTOPURINE
     Route: 065
     Dates: start: 20250124, end: 20250124
  15. MERCAPTOPURINE [Concomitant]
     Active Substance: MERCAPTOPURINE
     Route: 065
     Dates: start: 20250131, end: 20250131
  16. MERCAPTOPURINE [Concomitant]
     Active Substance: MERCAPTOPURINE
     Route: 065
     Dates: start: 20250219, end: 20250219
  17. METHOTREXATE [Concomitant]
     Active Substance: METHOTREXATE
     Indication: Product used for unknown indication
     Route: 037
     Dates: start: 20250129, end: 20250129
  18. METHOTREXATE [Concomitant]
     Active Substance: METHOTREXATE
     Route: 037
     Dates: start: 20250219, end: 20250219
  19. CYCLOPHOSPHAMIDE [Concomitant]
     Active Substance: CYCLOPHOSPHAMIDE
     Indication: Product used for unknown indication
     Route: 065
     Dates: start: 20250121, end: 20250121
  20. CYCLOPHOSPHAMIDE [Concomitant]
     Active Substance: CYCLOPHOSPHAMIDE
     Route: 065
     Dates: start: 20250219, end: 20250219
  21. VINCRISTINE [Concomitant]
     Active Substance: VINCRISTINE
     Indication: Product used for unknown indication
     Route: 065
     Dates: start: 20250205, end: 20250205
  22. VINCRISTINE [Concomitant]
     Active Substance: VINCRISTINE
     Route: 065
  23. CYTARABINE [Concomitant]
     Active Substance: CYTARABINE
     Indication: Product used for unknown indication
     Route: 065
     Dates: start: 20250122, end: 20250122
  24. CYTARABINE [Concomitant]
     Active Substance: CYTARABINE
     Route: 065
     Dates: start: 20250123, end: 20250123
  25. CYTARABINE [Concomitant]
     Active Substance: CYTARABINE
     Route: 065
     Dates: start: 20250124, end: 20250124
  26. CYTARABINE [Concomitant]
     Active Substance: CYTARABINE
     Route: 065
     Dates: start: 20250125, end: 20250125
  27. CYTARABINE [Concomitant]
     Active Substance: CYTARABINE
     Route: 065
  28. CYTARABINE [Concomitant]
     Active Substance: CYTARABINE
     Route: 065
     Dates: start: 20250220, end: 20250220
  29. CYTARABINE [Concomitant]
     Active Substance: CYTARABINE
     Route: 065
     Dates: start: 20250221, end: 20250221
  30. CYTARABINE [Concomitant]
     Active Substance: CYTARABINE
     Route: 065
     Dates: start: 20250222, end: 20250222
  31. CYTARABINE [Concomitant]
     Active Substance: CYTARABINE
     Route: 065
     Dates: start: 20250223, end: 20250223
  32. SEVELAMER [Concomitant]
     Active Substance: SEVELAMER
     Indication: Product used for unknown indication
     Route: 065
     Dates: start: 20241212, end: 20250308
  33. GRANISETRON [Concomitant]
     Active Substance: GRANISETRON
     Indication: Product used for unknown indication
     Route: 065
     Dates: start: 20241230, end: 20250308
  34. PANTOPRAZOLE SODIUM [Concomitant]
     Active Substance: PANTOPRAZOLE SODIUM
     Indication: Product used for unknown indication
     Route: 065
     Dates: start: 20241227, end: 20250308

REACTIONS (7)
  - Septic cardiomyopathy [Fatal]
  - Neutropenic colitis [Fatal]
  - Hypoglycaemic seizure [Fatal]
  - Febrile neutropenia [Fatal]
  - Malnutrition [Fatal]
  - Upper respiratory tract infection [Unknown]
  - Sepsis [Unknown]

NARRATIVE: CASE EVENT DATE: 20250101
